FAERS Safety Report 13008811 (Version 1)
Quarter: 2016Q4

REPORT INFORMATION
  Report Type: Report from Study
  Country: US (occurrence: US)
  Receive Date: 20161208
  Receipt Date: 20161208
  Transmission Date: 20170207
  Serious: Yes (Other)
  Sender: FDA-Public Use
  Company Number: PHEH2016US031513

PATIENT
  Age: 70 Year
  Sex: Male

DRUGS (1)
  1. ENTRESTO [Suspect]
     Active Substance: SACUBITRIL\VALSARTAN
     Indication: RESTRICTIVE CARDIOMYOPATHY
     Dosage: 200 MG, QD
     Route: 048
     Dates: start: 20161101

REACTIONS (5)
  - Diabetes mellitus [Unknown]
  - Product use issue [Unknown]
  - Renal impairment [Unknown]
  - Inappropriate schedule of drug administration [Unknown]
  - Myalgia [Not Recovered/Not Resolved]

NARRATIVE: CASE EVENT DATE: 20161101
